FAERS Safety Report 10265600 (Version 9)
Quarter: 2015Q3

REPORT INFORMATION
  Report Type: Report from Study
  Country: GB (occurrence: None)
  Receive Date: 20140624
  Receipt Date: 20150729
  Transmission Date: 20151125
  Serious: Yes (Death, Hospitalization, Other)
  Sender: FDA-Public Use
  Company Number: ADR-2014-01062

PATIENT
  Age: 39 Year
  Sex: Male

DRUGS (15)
  1. IBUPROFEN. [Suspect]
     Active Substance: IBUPROFEN
     Indication: FALL
     Route: 048
     Dates: start: 20140109
  2. ZOPICLONE [Suspect]
     Active Substance: ZOPICLONE
     Indication: INSOMNIA
     Route: 048
     Dates: start: 20130220
  3. BACLOFEN. [Suspect]
     Active Substance: BACLOFEN
     Indication: MUSCLE SPASTICITY
     Dosage: DURATION: 1 YEAR 24 WEEKS 5 DAYS
     Route: 048
     Dates: start: 20120801, end: 20140120
  4. CO-DYDRAMOL [Suspect]
     Active Substance: ACETAMINOPHEN\DIHYDROCODEINE
     Indication: ANALGESIC THERAPY
     Route: 048
     Dates: start: 20140109
  5. AMLODIPINE [Suspect]
     Active Substance: AMLODIPINE BESYLATE
     Indication: HYPERTENSION
     Route: 048
     Dates: start: 20120705
  6. PARACETAMOL [Suspect]
     Active Substance: ACETAMINOPHEN
     Indication: ANALGESIC THERAPY
     Route: 048
     Dates: start: 20121112
  7. SILDENAFIL. [Suspect]
     Active Substance: SILDENAFIL
     Indication: ERECTILE DYSFUNCTION
     Dosage: DURATION: 1 YEAR 24 WEEKS 5 DAYS, DOSE: 60 MG, ROUTE: PO
     Route: 048
     Dates: start: 20130220
  8. RAMIPRIL. [Suspect]
     Active Substance: RAMIPRIL
     Indication: HYPERTENSION
     Dosage: DURATION 1 YEAR 3 WEEKS 2 DAYS, DOSE: 50 MG, ROUTE: PO
     Route: 048
     Dates: start: 20140113
  9. LIORESAL [Suspect]
     Active Substance: BACLOFEN
     Indication: MUSCLE SPASTICITY
  10. METOPROLOL [Suspect]
     Active Substance: METOPROLOL
     Indication: HYPERTENSION
     Route: 048
     Dates: start: 20120705
  11. LIORESAL [Suspect]
     Active Substance: BACLOFEN
     Indication: MUSCLE SPASTICITY
  12. IBUPROFEN. [Suspect]
     Active Substance: IBUPROFEN
     Indication: PAIN
     Route: 048
     Dates: start: 20140109
  13. SERTRALINE [Suspect]
     Active Substance: SERTRALINE HYDROCHLORIDE
     Indication: DEPRESSION
     Dosage: DURATION: 1 YEAR 3 WEEKS 2 DAYS
     Route: 048
     Dates: start: 20121210, end: 20140101
  14. VENLAFAXINE [Suspect]
     Active Substance: VENLAFAXINE HYDROCHLORIDE
     Indication: DEPRESSION
     Route: 048
     Dates: start: 20140226
  15. MIRTAZAPINE (MIRTAZAPINE) [Suspect]
     Active Substance: MIRTAZAPINE
     Dosage: AND WAS AN ONGOING TREATMENT (ROUTE/DOSE/CONCENTRATION/INDICATION/DURATION NOT PROVIDED)?
     Dates: start: 20140522

REACTIONS (30)
  - Injury [None]
  - Scar [None]
  - Depression [None]
  - Fall [None]
  - Neutrophil count increased [None]
  - Implant site extravasation [None]
  - Wound dehiscence [None]
  - Onychomycosis [None]
  - Petechiae [None]
  - Scratch [None]
  - Hepatic steatosis [None]
  - Vomiting [None]
  - Anxiety [None]
  - Sudden death [None]
  - Pulmonary oedema [None]
  - Cardiomegaly [None]
  - Toxicity to various agents [None]
  - Malaise [None]
  - Pulmonary congestion [None]
  - Pre-existing disease [None]
  - Condition aggravated [None]
  - Abnormal behaviour [None]
  - Implant site infection [None]
  - Treatment noncompliance [None]
  - Therapy change [None]
  - Alcohol poisoning [None]
  - Conjunctival hyperaemia [None]
  - Intentional self-injury [None]
  - Stress [None]
  - Blood ethanol increased [None]
